FAERS Safety Report 4279691-4 (Version None)
Quarter: 2004Q1

REPORT INFORMATION
  Report Type: 
  Country: None (occurrence: None)
  Receive Date: 20040123
  Receipt Date: 20040116
  Transmission Date: 20041129
  Serious: Yes (Hospitalization, Other)
  Sender: FDA-Public Use
  Company Number: FRWYE514016JAN04

PATIENT
  Age: 33 Year
  Sex: Female

DRUGS (6)
  1. EFFEXOR [Suspect]
     Dosage: 200 MG 1X PER 1 DAY
     Route: 048
     Dates: start: 20021101, end: 20030618
  2. COMBIVIR [Suspect]
     Dosage: 1 DOSE 1X PER 2 DAY
     Route: 048
     Dates: start: 20030601, end: 20030616
  3. NOCERTONE (OXETRONE FUMARATE) [Suspect]
     Dosage: 2 DOSE 1X PER 1 DAY
     Route: 048
     Dates: start: 20030610, end: 20030618
  4. QUITAXON (DOXEPIN HYDROCHLORIDE, , 0) [Suspect]
     Dosage: 2 DOSE 1X PER 1 DAY
     Route: 048
     Dates: start: 20030501, end: 20030530
  5. OXAZEPAM [Suspect]
     Dosage: 200 MG 1X PER 1 DAY
     Route: 048
     Dates: start: 20030401, end: 20030618
  6. ZOLPIDEM TARTRATE [Suspect]
     Dosage: 2 DOSE 1X PER 2 DAY
     Route: 048
     Dates: start: 20030201, end: 20030616

REACTIONS (2)
  - STEVENS-JOHNSON SYNDROME [None]
  - TOXIC EPIDERMAL NECROLYSIS [None]
